FAERS Safety Report 16684480 (Version 7)
Quarter: 2022Q3

REPORT INFORMATION
  Report Type: Report from Study
  Country: DE (occurrence: None)
  Receive Date: 20190808
  Receipt Date: 20220902
  Transmission Date: 20221026
  Serious: Yes (Hospitalization, Other)
  Sender: FDA-Public Use
  Company Number: 2019SF10951

PATIENT
  Age: 54 Year
  Sex: Female

DRUGS (36)
  1. DURVALUMAB [Suspect]
     Active Substance: DURVALUMAB
     Indication: Ovarian cancer
     Route: 042
     Dates: start: 20190520, end: 20190520
  2. DURVALUMAB [Suspect]
     Active Substance: DURVALUMAB
     Indication: Ovarian cancer
     Route: 042
     Dates: start: 20190611, end: 20190611
  3. DURVALUMAB [Suspect]
     Active Substance: DURVALUMAB
     Indication: Ovarian cancer
     Route: 042
     Dates: start: 20190716, end: 20190716
  4. CARBOPLATIN [Suspect]
     Active Substance: CARBOPLATIN
     Indication: Ovarian cancer
     Route: 042
     Dates: start: 20190429, end: 20190429
  5. CARBOPLATIN [Suspect]
     Active Substance: CARBOPLATIN
     Indication: Ovarian cancer
     Route: 042
     Dates: start: 20190520, end: 20190520
  6. CARBOPLATIN [Suspect]
     Active Substance: CARBOPLATIN
     Indication: Ovarian cancer
     Route: 042
     Dates: start: 20190611, end: 20190611
  7. CARBOPLATIN [Suspect]
     Active Substance: CARBOPLATIN
     Indication: Ovarian cancer
     Route: 042
     Dates: start: 20190716, end: 20190716
  8. CARBOPLATIN [Suspect]
     Active Substance: CARBOPLATIN
     Indication: Ovarian cancer
     Route: 042
     Dates: start: 20190827, end: 20190827
  9. CARBOPLATIN [Suspect]
     Active Substance: CARBOPLATIN
     Indication: Ovarian cancer
     Route: 042
     Dates: start: 20190924, end: 20190924
  10. PACLITAXEL [Suspect]
     Active Substance: PACLITAXEL
     Indication: Ovarian cancer
     Route: 042
     Dates: start: 20190429, end: 20190429
  11. PACLITAXEL [Suspect]
     Active Substance: PACLITAXEL
     Indication: Ovarian cancer
     Route: 042
     Dates: start: 20190520, end: 20190520
  12. PACLITAXEL [Suspect]
     Active Substance: PACLITAXEL
     Indication: Ovarian cancer
     Route: 042
     Dates: start: 20190611, end: 20190611
  13. PACLITAXEL [Suspect]
     Active Substance: PACLITAXEL
     Indication: Ovarian cancer
     Route: 042
     Dates: start: 20190716, end: 20190716
  14. BEVACIZUMAB [Concomitant]
     Active Substance: BEVACIZUMAB
     Indication: Ovarian cancer
     Route: 042
     Dates: start: 20190520, end: 20190520
  15. BEVACIZUMAB [Concomitant]
     Active Substance: BEVACIZUMAB
     Indication: Ovarian cancer
     Route: 042
     Dates: start: 20190611, end: 20190611
  16. BEVACIZUMAB [Concomitant]
     Active Substance: BEVACIZUMAB
     Indication: Ovarian cancer
     Route: 042
     Dates: start: 20190716, end: 20190716
  17. KALINOR(POTASSIUM CHLORIDE [Concomitant]
     Indication: Hypokalaemia
     Route: 048
     Dates: start: 20190617, end: 20191025
  18. KALINOR(POTASSIUM CHLORIDE [Concomitant]
     Indication: Hypokalaemia
     Route: 048
     Dates: start: 20190617, end: 20191025
  19. KALINOR(POTASSIUM CHLORIDE [Concomitant]
     Indication: Hypokalaemia
     Route: 048
     Dates: start: 20190626, end: 20191025
  20. KALINOR(POTASSIUM CHLORIDE [Concomitant]
     Indication: Hypokalaemia
     Route: 048
     Dates: start: 20190626, end: 20191025
  21. NETUPITANT [Concomitant]
     Active Substance: NETUPITANT
     Indication: Prophylaxis of nausea and vomiting
     Dosage: 300.00 MG DAY 1 OF CHEMOTHERAPY
     Route: 048
     Dates: start: 20190429, end: 20190924
  22. PALONOSETRON [Concomitant]
     Active Substance: PALONOSETRON
     Indication: Prophylaxis of nausea and vomiting
     Dosage: 0.50 MG DAY 1 OF CHEMOTHERAPY
     Route: 048
     Dates: start: 20190429, end: 20190924
  23. CLEMASTINE [Concomitant]
     Active Substance: CLEMASTINE
     Indication: Hypersensitivity
     Dosage: 2.00 MG DAY 1 OF CHEMOTHERAPY
     Route: 042
     Dates: start: 20190429, end: 20190716
  24. RANITIDINE HYDROCHLORIDE [Concomitant]
     Active Substance: RANITIDINE HYDROCHLORIDE
     Indication: Prophylaxis
     Dosage: 50.00 MG DAY 1 OF CHEMOTHERAPY
     Route: 042
     Dates: start: 20190429, end: 20190716
  25. DEXAMETHASONE [Concomitant]
     Active Substance: DEXAMETHASONE
     Indication: Prophylaxis of nausea and vomiting
     Dosage: 12.00 MG DAY 1 OF CHEMOTHERAPY
     Route: 042
     Dates: start: 20190429, end: 20190716
  26. METOCLOPRAMIDE [Concomitant]
     Active Substance: METOCLOPRAMIDE
     Indication: Prophylaxis of nausea and vomiting
     Dosage: 10.00 MG DAY 1 TO 3 OF CHEMOTHERAPY
     Route: 048
     Dates: start: 20190429, end: 20190716
  27. NEULASTA [Concomitant]
     Active Substance: PEGFILGRASTIM
     Indication: Prophylaxis
     Dosage: 6.00 MG DAY 2 ON CHEMOTHERAPY
     Route: 058
     Dates: start: 20190429, end: 20190716
  28. BISOPROLOL [Concomitant]
     Active Substance: BISOPROLOL
     Indication: Hypertension
     Route: 048
     Dates: start: 2008
  29. METHIMAZOLE [Concomitant]
     Active Substance: METHIMAZOLE
     Indication: Hyperthyroidism
     Route: 048
     Dates: start: 20190701, end: 20190708
  30. METHIMAZOLE [Concomitant]
     Active Substance: METHIMAZOLE
     Indication: Hyperthyroidism
     Route: 048
     Dates: start: 20190708, end: 20190801
  31. METFORMIN [Concomitant]
     Active Substance: METFORMIN HYDROCHLORIDE
     Indication: Hyperglycaemia
     Route: 048
     Dates: start: 20190627, end: 20190715
  32. ISOTONIC SALINE SOLUTION [Concomitant]
     Indication: Fatigue
     Dosage: DAILY
     Route: 042
     Dates: start: 20190708, end: 20190710
  33. DALTEPARIN SODIUM [Concomitant]
     Active Substance: DALTEPARIN SODIUM
     Indication: Thrombosis prophylaxis
     Dosage: 2500.00 IE DAILY
     Route: 058
     Dates: start: 20190708, end: 20190710
  34. PIPERACILLIN AND TAZOBACTAM [Concomitant]
     Active Substance: PIPERACILLIN SODIUM\TAZOBACTAM SODIUM
     Indication: Infection
     Dosage: 4.0G UNKNOWN
     Route: 042
     Dates: start: 20190801, end: 20190812
  35. MAGNESIUM [Concomitant]
     Active Substance: MAGNESIUM
     Indication: Electrocardiogram QT prolonged
     Dates: start: 20190506
  36. KALINOR [Concomitant]
     Indication: Hypokalaemia
     Dates: start: 20190626

REACTIONS (2)
  - Thrombocytopenia [Recovered/Resolved]
  - Drug-induced liver injury [Recovered/Resolved]

NARRATIVE: CASE EVENT DATE: 20190801
